FAERS Safety Report 21391846 (Version 1)
Quarter: 2022Q3

REPORT INFORMATION
  Report Type: Spontaneous
  Country: DE (occurrence: DE)
  Receive Date: 20220929
  Receipt Date: 20220929
  Transmission Date: 20221026
  Serious: Yes (Hospitalization)
  Sender: FDA-Public Use
  Company Number: DE-ADRED-08031-01

PATIENT
  Age: 69 Year
  Sex: Male
  Weight: 78 kg

DRUGS (14)
  1. ZYTIGA [Interacting]
     Active Substance: ABIRATERONE ACETATE
     Indication: Product used for unknown indication
     Dosage: 500 MG, 1-1-0-0, TABLES
     Route: 048
  2. BRIVUDINE [Interacting]
     Active Substance: BRIVUDINE
     Indication: Product used for unknown indication
     Dosage: 125 MG, 1X
     Route: 048
  3. PREDNISOLONE [Interacting]
     Active Substance: PREDNISOLONE
     Indication: Product used for unknown indication
     Dosage: 5 MG, 1-0-1-0, TABLETTEN
     Route: 048
  4. OXYCODONE [Concomitant]
     Active Substance: OXYCODONE
     Indication: Product used for unknown indication
     Dosage: 5 MG, 0-1-0-0, KAPSELN
     Route: 048
  5. OXYCODONE [Concomitant]
     Active Substance: OXYCODONE
     Dosage: 10 MG, 1-0-0-1, RETARD-TABLETTEN
     Route: 048
  6. IRON [Concomitant]
     Active Substance: IRON
     Indication: Product used for unknown indication
     Dosage: 50 MG, 1-0-1-0, RETARD-KAPSELN
     Route: 048
  7. ETORICOXIB [Concomitant]
     Active Substance: ETORICOXIB
     Dosage: 60 MG, 1-0-0-0, TABLETTEN
     Route: 048
  8. POLYETHYLENE GLYCOLS [Concomitant]
     Active Substance: POLYETHYLENE GLYCOLS
     Indication: Product used for unknown indication
     Dosage: 13.125 G, 1-0-0-0, PULVER ZUR HERSTELLUNG EINER L SUNG ZUM EINNEHMEN
     Route: 048
  9. MELPERONE [Concomitant]
     Active Substance: MELPERONE
     Indication: Product used for unknown indication
     Dosage: 25 MG, BEDARF, TABLETTEN
     Route: 048
  10. PREGABALIN [Concomitant]
     Active Substance: PREGABALIN
     Indication: Product used for unknown indication
     Dosage: 150 MG, 1-0-1-0, KAPSELN
     Route: 048
  11. PREGABALIN [Concomitant]
     Active Substance: PREGABALIN
     Dosage: 50 MG, 0-0-1-0, KAPSELN
     Route: 048
  12. METAMIZOL [Concomitant]
     Active Substance: METAMIZOLE SODIUM
     Indication: Product used for unknown indication
     Dosage: 1000 MG, 1-1-1-1, TROPFEN
     Route: 048
  13. CALCIUM CARBONATE [Concomitant]
     Active Substance: CALCIUM CARBONATE
     Indication: Product used for unknown indication
     Dosage: 500 MG, 1-0-0-0, BRAUSETABLETTEN
     Route: 048
  14. PANTOPRAZOLE SODIUM [Concomitant]
     Active Substance: PANTOPRAZOLE SODIUM
     Indication: Product used for unknown indication
     Dosage: 40 MG, 1-0-0-0, RETARD-TABLETTEN
     Route: 048

REACTIONS (4)
  - Herpes zoster [Unknown]
  - Product prescribing error [Unknown]
  - Labelled drug-drug interaction medication error [Unknown]
  - Blister [Unknown]

NARRATIVE: CASE EVENT DATE: 20210810
